FAERS Safety Report 14968996 (Version 2)
Quarter: 2018Q2

REPORT INFORMATION
  Report Type: Spontaneous
  Country: US (occurrence: US)
  Receive Date: 20180604
  Receipt Date: 20180628
  Transmission Date: 20180711
  Serious: Yes (Death, Other)
  Sender: FDA-Public Use
  Company Number: US-BRACCO-2018US02808

PATIENT
  Age: 75 Year
  Sex: Male

DRUGS (1)
  1. MULTIHANCE [Suspect]
     Active Substance: GADOBENATE DIMEGLUMINE
     Indication: NUCLEAR MAGNETIC RESONANCE IMAGING NECK
     Dosage: 15 ML, SINGLE
     Route: 042
     Dates: start: 20180521, end: 20180521

REACTIONS (4)
  - Ventricular fibrillation [Unknown]
  - Seizure [Unknown]
  - Acute myocardial infarction [Fatal]
  - Unresponsive to stimuli [Unknown]

NARRATIVE: CASE EVENT DATE: 20180521
